FAERS Safety Report 17967725 (Version 2)
Quarter: 2020Q3

REPORT INFORMATION
  Report Type: Spontaneous
  Country: US (occurrence: US)
  Receive Date: 20200701
  Receipt Date: 20200929
  Transmission Date: 20201103
  Serious: Yes (Other)
  Sender: FDA-Public Use
  Company Number: US-PFIZER INC-2020250958

PATIENT
  Age: 56 Year
  Sex: Female

DRUGS (1)
  1. XELJANZ XR [Suspect]
     Active Substance: TOFACITINIB CITRATE
     Dosage: 11 MG
     Dates: start: 20181201

REACTIONS (5)
  - Diarrhoea [Unknown]
  - Chest pain [Unknown]
  - Odynophagia [Unknown]
  - Oropharyngeal pain [Unknown]
  - Neutropenia [Unknown]
